FAERS Safety Report 10161685 (Version 1)
Quarter: 2014Q2

REPORT INFORMATION
  Report Type: Spontaneous
  Country: US (occurrence: None)
  Receive Date: 20140507
  Receipt Date: 20140507
  Transmission Date: 20141212
  Serious: Yes (Death)
  Sender: FDA-Public Use
  Company Number: ADR-2014-00754

PATIENT
  Age: 26 Year
  Sex: Male

DRUGS (2)
  1. COMPOUNDED BACLOFEN INTRATHECAL [Suspect]
     Indication: MUSCLE SPASTICITY
  2. BUPIVACAINE INTRATHECAL [Suspect]

REACTIONS (2)
  - Pulseless electrical activity [None]
  - Cardio-respiratory arrest [None]
